FAERS Safety Report 5524015-5 (Version None)
Quarter: 2007Q4

REPORT INFORMATION
  Report Type: 
  Country: None (occurrence: None)
  Receive Date: 20071121
  Receipt Date: 20071108
  Transmission Date: 20080405
  Serious: No
  Sender: FDA-Public Use
  Company Number: US-BOEHRINGER INGELHEIM PHARMACEUTICALS, INC.-2007-BP-23272BP

PATIENT
  Sex: Female

DRUGS (8)
  1. SPIRIVA [Suspect]
     Indication: CHRONIC OBSTRUCTIVE PULMONARY DISEASE
     Dates: start: 20070101
  2. SPIRIVA [Suspect]
     Indication: ASTHMA
  3. SPIRIVA [Suspect]
     Indication: BRONCHITIS
  4. ADVAIR DISKUS 100/50 [Concomitant]
  5. SINGULAIR [Concomitant]
  6. LISINOPRIL AND HYDROCHLOROTHIAZIDE [Concomitant]
  7. ALBUTEROL [Concomitant]
  8. ASPIRIN [Concomitant]

REACTIONS (2)
  - DRUG INEFFECTIVE [None]
  - DYSPNOEA [None]
